FAERS Safety Report 5051976-3 (Version None)
Quarter: 2006Q3

REPORT INFORMATION
  Report Type: 
  Country: None (occurrence: None)
  Receive Date: 20060710
  Receipt Date: 20060626
  Transmission Date: 20061208
  Serious: Yes (Other)
  Sender: FDA-Public Use
  Company Number: 2006080253

PATIENT
  Age: 38 Year
  Sex: Female
  Weight: 90.7194 kg

DRUGS (3)
  1. GEODON [Suspect]
     Indication: BIPOLAR DISORDER
     Dosage: 120 MG (60 MG, 2 IN 1 D)
     Dates: start: 20060101
  2. MOTRIN [Concomitant]
  3. PERCOCET [Concomitant]

REACTIONS (3)
  - CONSTIPATION [None]
  - FEELING HOT [None]
  - INSOMNIA [None]
